FAERS Safety Report 6212685-8 (Version None)
Quarter: 2009Q2

REPORT INFORMATION
  Report Type: 
  Country: None (occurrence: None)
  Receive Date: 20090603
  Receipt Date: 20090526
  Transmission Date: 20091009
  Serious: Yes (Hospitalization, Other)
  Sender: FDA-Public Use
  Company Number: US-AMGEN-QUU348581

PATIENT
  Sex: Female

DRUGS (1)
  1. ENBREL [Suspect]
     Indication: RHEUMATOID ARTHRITIS
     Route: 058
     Dates: start: 19990401

REACTIONS (5)
  - DIARRHOEA [None]
  - PEPTIC ULCER HAEMORRHAGE [None]
  - PNEUMONIA [None]
  - VAGINAL INFECTION [None]
  - WEIGHT DECREASED [None]
